FAERS Safety Report 10609461 (Version 2)
Quarter: 2015Q1

REPORT INFORMATION
  Report Type: Spontaneous
  Country: DE (occurrence: DE)
  Receive Date: 20141126
  Receipt Date: 20150223
  Transmission Date: 20150720
  Serious: Yes (Other)
  Sender: FDA-Public Use
  Company Number: PHHY2014DE153848

PATIENT
  Sex: Female
  Weight: 62 kg

DRUGS (3)
  1. ZOMETA [Suspect]
     Active Substance: ZOLEDRONIC ACID
     Indication: METASTASES TO BONE
     Dosage: UNK
     Route: 065
     Dates: start: 20130719
  2. FEMARA [Suspect]
     Active Substance: LETROZOLE
     Indication: BREAST CANCER METASTATIC
     Route: 065
     Dates: start: 201211, end: 201402
  3. PAMIDRONATE [Suspect]
     Active Substance: PAMIDRONATE DISODIUM
     Indication: PRODUCT USED FOR UNKNOWN INDICATION
     Route: 065
     Dates: end: 20130524

REACTIONS (7)
  - Metastases to thorax [Not Recovered/Not Resolved]
  - Metastases to peritoneum [Not Recovered/Not Resolved]
  - Pulmonary embolism [Not Recovered/Not Resolved]
  - Ascites [Unknown]
  - Pulmonary infarction [Recovered/Resolved]
  - Pleural effusion [Recovered/Resolved]
  - Carbohydrate antigen 15-3 increased [Unknown]

NARRATIVE: CASE EVENT DATE: 201401
